FAERS Safety Report 20988357 (Version 1)
Quarter: 2022Q2

REPORT INFORMATION
  Report Type: Spontaneous
  Country: US (occurrence: None)
  Receive Date: 20220620
  Receipt Date: 20220620
  Transmission Date: 20220720
  Serious: Yes (Disabling, Other)
  Sender: FDA-Public Use
  Company Number: None

PATIENT
  Age: 45 Year
  Sex: Female
  Weight: 82.8 kg

DRUGS (5)
  1. SUBOXONE [Suspect]
     Active Substance: BUPRENORPHINE HYDROCHLORIDE\NALOXONE HYDROCHLORIDE
     Indication: Product used for unknown indication
     Dosage: FREQUENCY : DAILY;?
     Route: 060
  2. Sublicade shot [Concomitant]
  3. ATIVAN [Concomitant]
     Active Substance: LORAZEPAM
  4. VITAMINS [Concomitant]
     Active Substance: VITAMINS
  5. EXCEDRIN [Concomitant]
     Active Substance: ACETAMINOPHEN\ASPIRIN\CAFFEINE

REACTIONS (3)
  - Tooth loss [None]
  - Tooth fracture [None]
  - Tooth infection [None]

NARRATIVE: CASE EVENT DATE: 20150602
